FAERS Safety Report 4950703-5 (Version None)
Quarter: 2006Q1

REPORT INFORMATION
  Report Type: 
  Country: None (occurrence: None)
  Receive Date: 20060321
  Receipt Date: 20060321
  Transmission Date: 20060701
  Serious: Yes (Other)
  Sender: FDA-Public Use
  Company Number: None

PATIENT
  Age: 73 Year
  Sex: Male
  Weight: 93 kg

DRUGS (2)
  1. NIACIN [Suspect]
  2. SYNTHROID [Concomitant]

REACTIONS (3)
  - DIZZINESS [None]
  - FLUSHING [None]
  - VISUAL DISTURBANCE [None]
